FAERS Safety Report 6168426-6 (Version None)
Quarter: 2009Q2

REPORT INFORMATION
  Report Type: 
  Country: None (occurrence: None)
  Receive Date: 20090427
  Receipt Date: 20090417
  Transmission Date: 20091009
  Serious: Yes (Hospitalization, Congenital Anomaly)
  Sender: FDA-Public Use
  Company Number: A0746357A

PATIENT
  Sex: Female
  Weight: 3 kg

DRUGS (9)
  1. PAXIL [Suspect]
     Indication: ANXIETY
     Dosage: 40MG PER DAY
     Dates: start: 20030401, end: 20060101
  2. PAROXETINE HYDROCHLORIDE [Suspect]
     Indication: ANXIETY
  3. VITAMIN TAB [Concomitant]
  4. ALBUTEROL [Concomitant]
  5. SINGULAIR [Concomitant]
  6. ADVAIR HFA [Concomitant]
  7. ZELNORM [Concomitant]
  8. PERCOCET [Concomitant]
     Dates: start: 20040801
  9. PHENERGAN [Concomitant]
     Dates: start: 20060501

REACTIONS (9)
  - ARNOLD-CHIARI MALFORMATION [None]
  - CEREBRAL VENTRICLE DILATATION [None]
  - DRUG EXPOSURE DURING PREGNANCY [None]
  - HYDROCEPHALUS [None]
  - MATERNAL DRUGS AFFECTING FOETUS [None]
  - MENINGOMYELOCELE [None]
  - NEURAL TUBE DEFECT [None]
  - SPINA BIFIDA [None]
  - TALIPES [None]
